FAERS Safety Report 11471422 (Version 2)
Quarter: 2015Q3

REPORT INFORMATION
  Report Type: Spontaneous
  Country: US (occurrence: US)
  Receive Date: 20150903
  Receipt Date: 20150903
  Transmission Date: 20151125
  Serious: No
  Sender: FDA-Public Use
  Company Number: US-ELI_LILLY_AND_COMPANY-US201202005256

PATIENT
  Age: 50 Year
  Sex: Female

DRUGS (1)
  1. CYMBALTA [Suspect]
     Active Substance: DULOXETINE HYDROCHLORIDE
     Indication: MUSCULOSKELETAL PAIN
     Dosage: 30 MG, EACH EVENING
     Dates: start: 20120210

REACTIONS (9)
  - Feeling abnormal [Not Recovered/Not Resolved]
  - Night sweats [Not Recovered/Not Resolved]
  - Throat irritation [Not Recovered/Not Resolved]
  - Dry mouth [Not Recovered/Not Resolved]
  - Decreased appetite [Not Recovered/Not Resolved]
  - Nausea [Not Recovered/Not Resolved]
  - Fatigue [Not Recovered/Not Resolved]
  - Vision blurred [Not Recovered/Not Resolved]
  - Hyperhidrosis [Not Recovered/Not Resolved]

NARRATIVE: CASE EVENT DATE: 201202
